FAERS Safety Report 7235490-2 (Version None)
Quarter: 2011Q1

REPORT INFORMATION
  Report Type: 
  Country: None (occurrence: None)
  Receive Date: 20110120
  Receipt Date: 20110112
  Transmission Date: 20110831
  Serious: Yes (Hospitalization)
  Sender: FDA-Public Use
  Company Number: US-JNJFOC-20100806679

PATIENT
  Sex: Male

DRUGS (5)
  1. STELARA [Suspect]
     Route: 058
  2. STELARA [Suspect]
     Indication: PSORIASIS
     Route: 058
  3. STELARA [Suspect]
     Route: 058
  4. PREDNISONE [Concomitant]
  5. CYCLOSPORINE [Concomitant]

REACTIONS (4)
  - CHILLS [None]
  - HEADACHE [None]
  - PSORIASIS [None]
  - VISUAL IMPAIRMENT [None]
